FAERS Safety Report 8205522-3 (Version None)
Quarter: 2012Q1

REPORT INFORMATION
  Report Type: 
  Country: None (occurrence: None)
  Receive Date: 20120313
  Receipt Date: 20120104
  Transmission Date: 20120608
  Serious: Yes (Hospitalization)
  Sender: FDA-Public Use
  Company Number: PHHY2012KR000832

PATIENT
  Sex: Male

DRUGS (2)
  1. EXJADE [Suspect]
     Indication: IRON OVERLOAD
     Dosage: 1500 MG, UNK
     Route: 048
     Dates: start: 20091127
  2. EXJADE [Suspect]
     Indication: APLASTIC ANAEMIA

REACTIONS (3)
  - HAEMOGLOBIN DECREASED [None]
  - ROAD TRAFFIC ACCIDENT [None]
  - PAIN [None]
